FAERS Safety Report 9965555 (Version 1)
Quarter: 2014Q1

REPORT INFORMATION
  Report Type: Report from Study
  Country: US (occurrence: US)
  Receive Date: 20140305
  Receipt Date: 20140305
  Transmission Date: 20141002
  Serious: No
  Sender: FDA-Public Use
  Company Number: US-ABBVIE-13P-163-1125592-00

PATIENT
  Sex: Female

DRUGS (5)
  1. HUMIRA [Suspect]
     Indication: PSORIATIC ARTHROPATHY
     Dates: start: 201106
  2. KLONOPIN [Concomitant]
  3. GENERIC LAMICTAL [Concomitant]
  4. NAPROXEN [Concomitant]
  5. PROCHLORPERAZINE [Concomitant]

REACTIONS (2)
  - Joint contracture [Recovering/Resolving]
  - Pain [Recovering/Resolving]
